FAERS Safety Report 5218405-8 (Version None)
Quarter: 2007Q1

REPORT INFORMATION
  Report Type: 
  Country: None (occurrence: None)
  Receive Date: 20070124
  Receipt Date: 20070112
  Transmission Date: 20070707
  Serious: Yes (Hospitalization, Other)
  Sender: FDA-Public Use
  Company Number: US-PFIZER INC-2007004997

PATIENT
  Sex: Male
  Weight: 69.9 kg

DRUGS (6)
  1. VIAGRA [Suspect]
     Indication: ERECTILE DYSFUNCTION
     Route: 048
  2. TAMSULOSIN HCL [Interacting]
     Indication: BENIGN PROSTATIC HYPERPLASIA
  3. OTHER ANTITUSSIVES AND EXPECTORANTS [Interacting]
     Indication: NASOPHARYNGITIS
  4. FOSAMAX [Concomitant]
  5. PROSCAR [Concomitant]
  6. CELEBREX [Concomitant]

REACTIONS (3)
  - DRUG INTERACTION [None]
  - HYPOTENSION [None]
  - LOSS OF CONSCIOUSNESS [None]
